FAERS Safety Report 19077252 (Version 1)
Quarter: 2021Q1

REPORT INFORMATION
  Report Type: Spontaneous
  Country: ES (occurrence: ES)
  Receive Date: 20210331
  Receipt Date: 20210331
  Transmission Date: 20210420
  Serious: Yes (Hospitalization, Other)
  Sender: FDA-Public Use
  Company Number: ES-TILLOMEDPR-2021-EPL-000942

PATIENT
  Age: 51 Year
  Sex: Male

DRUGS (4)
  1. MELPHALAN. [Concomitant]
     Active Substance: MELPHALAN
     Indication: SURGICAL PRECONDITIONING
  2. ETOPOSIDE. [Concomitant]
     Active Substance: ETOPOSIDE
     Indication: SURGICAL PRECONDITIONING
  3. CARMUSTINE. [Suspect]
     Active Substance: CARMUSTINE
     Indication: SURGICAL PRECONDITIONING
  4. CYTARABINE. [Concomitant]
     Active Substance: CYTARABINE
     Indication: SURGICAL PRECONDITIONING

REACTIONS (2)
  - Pneumonia [Unknown]
  - Pulmonary toxicity [Recovering/Resolving]
